FAERS Safety Report 8560651-X (Version None)
Quarter: 2012Q3

REPORT INFORMATION
  Report Type: 
  Country: None (occurrence: None)
  Receive Date: 20120802
  Receipt Date: 20120730
  Transmission Date: 20120928
  Serious: Yes (Death, Other)
  Sender: FDA-Public Use
  Company Number: US-PFIZER INC-2012105955

PATIENT
  Sex: Female

DRUGS (4)
  1. CHANTIX [Suspect]
     Dosage: UNK
     Dates: start: 20080130, end: 20080301
  2. CHANTIX [Suspect]
     Indication: SMOKING CESSATION THERAPY
     Dosage: UNK
     Dates: start: 20070701, end: 20070901
  3. CHANTIX [Suspect]
     Dosage: UNK
     Dates: start: 20080501, end: 20080901
  4. ZOLPIDEM [Concomitant]
     Indication: INSOMNIA
     Dosage: UNK
     Dates: start: 20050501, end: 20120105

REACTIONS (7)
  - COMPLETED SUICIDE [None]
  - INTENTIONAL OVERDOSE [None]
  - SUICIDAL IDEATION [None]
  - ANXIETY [None]
  - ABNORMAL DREAMS [None]
  - ANGER [None]
  - DEPRESSION [None]
